FAERS Safety Report 19507701 (Version 25)
Quarter: 2023Q1

REPORT INFORMATION
  Report Type: Report from Study
  Country: CO (occurrence: CO)
  Receive Date: 20210708
  Receipt Date: 20230328
  Transmission Date: 20230417
  Serious: Yes (Hospitalization, Other)
  Sender: FDA-Public Use
  Company Number: CO-TAKEDA-2021TUS041585

PATIENT
  Age: 31 Year
  Sex: Female
  Weight: 77 kg

DRUGS (6)
  1. ICATIBANT [Suspect]
     Active Substance: ICATIBANT ACETATE
     Indication: Hereditary angioedema
     Dosage: 1 DOSAGE FORM
     Route: 058
     Dates: start: 20170118
  2. ICATIBANT [Suspect]
     Active Substance: ICATIBANT ACETATE
     Indication: Hereditary angioedema
     Dosage: 1 DOSAGE FORM
     Route: 058
     Dates: start: 20170118
  3. ICATIBANT [Suspect]
     Active Substance: ICATIBANT ACETATE
     Dosage: 30 MILLIGRAM
     Route: 058
     Dates: start: 20170118
  4. ICATIBANT [Suspect]
     Active Substance: ICATIBANT ACETATE
     Dosage: 30 MILLIGRAM
     Route: 058
     Dates: start: 20170118
  5. ICATIBANT [Suspect]
     Active Substance: ICATIBANT ACETATE
     Dosage: 30 MILLIGRAM, Q6HR
     Route: 058
     Dates: start: 20170118
  6. ICATIBANT [Suspect]
     Active Substance: ICATIBANT ACETATE
     Dosage: 30 MILLIGRAM, Q6HR
     Route: 058
     Dates: start: 20170118

REACTIONS (14)
  - Vomiting [Unknown]
  - Vaginal haemorrhage [Unknown]
  - COVID-19 [Recovered/Resolved]
  - Abdominal pain [Unknown]
  - Inflammation [Recovering/Resolving]
  - Pregnancy [Unknown]
  - Weight increased [Unknown]
  - Weight fluctuation [Unknown]
  - Influenza [Recovering/Resolving]
  - Discomfort [Recovering/Resolving]
  - Malaise [Recovering/Resolving]
  - Chest discomfort [Recovering/Resolving]
  - Nasal congestion [Recovering/Resolving]
  - Product prescribing error [Unknown]

NARRATIVE: CASE EVENT DATE: 20210701
